FAERS Safety Report 4486702-X (Version None)
Quarter: 2004Q4

REPORT INFORMATION
  Report Type: 
  Country: None (occurrence: None)
  Receive Date: 20041021
  Receipt Date: 20041011
  Transmission Date: 20050328
  Serious: Yes (Other)
  Sender: FDA-Public Use
  Company Number: 2004-09-0374

PATIENT
  Age: 14 Week
  Sex: Female

DRUGS (1)
  1. INTRON A [Suspect]
     Indication: HAEMANGIOMA
     Dosage: 1 MIU DAILY SUBCUTANEOUS
     Route: 058
     Dates: start: 19980101, end: 19990101

REACTIONS (7)
  - ASTIGMATISM [None]
  - CONDITION AGGRAVATED [None]
  - DEVELOPMENTAL DELAY [None]
  - HAEMANGIOMA [None]
  - HYPERMETROPIA [None]
  - INFLUENZA LIKE ILLNESS [None]
  - IRRITABILITY [None]
